FAERS Safety Report 6831664-0 (Version None)
Quarter: 2010Q3

REPORT INFORMATION
  Report Type: 
  Country: None (occurrence: None)
  Receive Date: 20100712
  Receipt Date: 20100702
  Transmission Date: 20110219
  Serious: Yes (Hospitalization)
  Sender: FDA-Public Use
  Company Number: DE-TEVA-187893ISR

PATIENT
  Age: 70 Year
  Sex: Male
  Weight: 62 kg

DRUGS (1)
  1. FENTANYL [Suspect]
     Indication: PANCREATIC CARCINOMA METASTATIC
     Route: 062
     Dates: start: 20090122

REACTIONS (1)
  - FAECALOMA [None]
